FAERS Safety Report 24392460 (Version 1)
Quarter: 2024Q4

REPORT INFORMATION
  Report Type: Spontaneous
  Country: KR (occurrence: KR)
  Receive Date: 20241003
  Receipt Date: 20241003
  Transmission Date: 20250115
  Serious: Yes (Hospitalization, Other)
  Sender: BRISTOL MYERS SQUIBB
  Company Number: KR-BRISTOL-MYERS SQUIBB COMPANY-2024-154385

PATIENT
  Age: 52 Year
  Sex: Male
  Weight: 70 kg

DRUGS (3)
  1. BARACLUDE [Suspect]
     Active Substance: ENTECAVIR
     Indication: Product used for unknown indication
     Dosage: INTERVAL  AND INTERVAL UNIT: 1 DAY
     Dates: start: 20210213
  2. EVEROLIMUS [Suspect]
     Active Substance: EVEROLIMUS
     Indication: Product used for unknown indication
     Dosage: INTERVAL AND INTERVAL UNIT: 0.5 DAY
     Dates: start: 20210308
  3. LACTOBACILLUS CASEI VAR RHAMNOSUS [Concomitant]
     Indication: Product used for unknown indication
     Dosage: INTERVAL AND INTERVAL UNIT: 0.5 DAY
     Dates: start: 20210219

REACTIONS (1)
  - Gastrointestinal ulcer haemorrhage [Recovering/Resolving]

NARRATIVE: CASE EVENT DATE: 20210315
